FAERS Safety Report 5661253-5 (Version None)
Quarter: 2008Q1

REPORT INFORMATION
  Report Type: 
  Country: None (occurrence: None)
  Receive Date: 20080312
  Receipt Date: 20080307
  Transmission Date: 20080703
  Serious: Yes (Hospitalization)
  Sender: FDA-Public Use
  Company Number: B0507099A

PATIENT
  Age: 57 Year
  Sex: Male
  Weight: 57 kg

DRUGS (5)
  1. ZANTAC [Suspect]
     Indication: PREMEDICATION
     Route: 042
     Dates: start: 20071009, end: 20080205
  2. SEROTONE [Concomitant]
     Indication: PREMEDICATION
     Route: 065
     Dates: start: 20071009
  3. DECADRON [Concomitant]
     Indication: PREMEDICATION
     Route: 065
     Dates: start: 20071009
  4. SODIUM CHLORIDE 0.9% [Concomitant]
  5. CHLORPHENIRAMINE MALEATE [Concomitant]
     Dates: start: 20080205

REACTIONS (6)
  - ANAPHYLACTIC SHOCK [None]
  - CYANOSIS [None]
  - DYSPHORIA [None]
  - FLUSHING [None]
  - RADIAL PULSE ABNORMAL [None]
  - VOMITING [None]
